FAERS Safety Report 7060030-0 (Version None)
Quarter: 2010Q4

REPORT INFORMATION
  Report Type: 
  Country: None (occurrence: None)
  Receive Date: 20101025
  Receipt Date: 20001117
  Transmission Date: 20110411
  Serious: No
  Sender: FDA-Public Use
  Company Number: US-BRISTOL-MYERS SQUIBB COMPANY-10580520

PATIENT
  Age: 42 Year
  Sex: Female

DRUGS (2)
  1. BUSPAR [Suspect]
     Indication: ANXIETY
     Dosage: DOSING SCHEDULE: ^QD/BID PO^
     Route: 048
     Dates: start: 19991201
  2. PROZAC [Concomitant]

REACTIONS (1)
  - DRUG EXPOSURE DURING PREGNANCY [None]
